FAERS Safety Report 8338283-8 (Version None)
Quarter: 2012Q2

REPORT INFORMATION
  Report Type: 
  Country: None (occurrence: None)
  Receive Date: 20120504
  Receipt Date: 20120427
  Transmission Date: 20120825
  Serious: Yes (Death, Hospitalization)
  Sender: FDA-Public Use
  Company Number: PHEH2012US008383

PATIENT
  Sex: Female

DRUGS (2)
  1. GILENYA [Suspect]
     Indication: MULTIPLE SCLEROSIS
     Route: 048
  2. SOLU-MEDROL [Concomitant]
     Dosage: 1 G, UNK
     Route: 042

REACTIONS (22)
  - BACK PAIN [None]
  - BONE LESION [None]
  - CENTRAL NERVOUS SYSTEM LESION [None]
  - WEIGHT DECREASED [None]
  - ASTHENIA [None]
  - FAECAL INCONTINENCE [None]
  - BREATH SOUNDS ABNORMAL [None]
  - RIB FRACTURE [None]
  - HAEMOGLOBIN INCREASED [None]
  - METASTASES TO BONE [None]
  - PULMONARY MASS [None]
  - RASH [None]
  - CHRONIC SINUSITIS [None]
  - HYPERTENSION [None]
  - MULTIPLE SCLEROSIS [None]
  - GAIT DISTURBANCE [None]
  - URINARY TRACT INFECTION [None]
  - URINARY INCONTINENCE [None]
  - MUSCULAR WEAKNESS [None]
  - HAEMATOCRIT INCREASED [None]
  - LUNG NEOPLASM MALIGNANT [None]
  - PAIN [None]
